FAERS Safety Report 5380235-4 (Version None)
Quarter: 2007Q3

REPORT INFORMATION
  Report Type: 
  Country: None (occurrence: None)
  Receive Date: 20070706
  Receipt Date: 20070514
  Transmission Date: 20080115
  Serious: No
  Sender: FDA-Public Use
  Company Number: A0651201A

PATIENT
  Age: 40 Year
  Sex: Female

DRUGS (5)
  1. TYKERB [Suspect]
     Indication: BREAST CANCER
     Dosage: 1250MG PER DAY
     Route: 048
     Dates: start: 20070430
  2. XELODA [Suspect]
     Indication: DRUG USE FOR UNKNOWN INDICATION
     Dosage: 2500MG UNKNOWN
     Route: 065
     Dates: start: 20070506
  3. TYLENOL W/ CODEINE [Concomitant]
  4. LORAZEPAM [Concomitant]
  5. VICODIN [Concomitant]

REACTIONS (4)
  - DIARRHOEA [None]
  - FALL [None]
  - FOOT FRACTURE [None]
  - RASH [None]
